FAERS Safety Report 7250923-3 (Version None)
Quarter: 2011Q1

REPORT INFORMATION
  Report Type: 
  Country: None (occurrence: None)
  Receive Date: 20110128
  Receipt Date: 20110119
  Transmission Date: 20110831
  Serious: Yes (Other)
  Sender: FDA-Public Use
  Company Number: A0908757A

PATIENT
  Sex: Female

DRUGS (1)
  1. PAXIL [Suspect]
     Indication: DEPRESSION
     Route: 048
     Dates: start: 19990101, end: 20010101

REACTIONS (8)
  - SHOPLIFTING [None]
  - WITHDRAWAL SYNDROME [None]
  - MANIA [None]
  - PAIN [None]
  - HEADACHE [None]
  - SUICIDAL IDEATION [None]
  - INFLUENZA [None]
  - PARANOIA [None]
